FAERS Safety Report 18891676 (Version 1)
Quarter: 2021Q1

REPORT INFORMATION
  Report Type: Spontaneous
  Country: US (occurrence: US)
  Receive Date: 20210215
  Receipt Date: 20210215
  Transmission Date: 20210420
  Serious: No
  Sender: FDA-Public Use
  Company Number: US-009507513-2102USA004784

PATIENT
  Sex: Female

DRUGS (1)
  1. NEXPLANON [Suspect]
     Active Substance: ETONOGESTREL
     Indication: MENORRHAGIA
     Dosage: DOSE: 68 MG
     Route: 059
     Dates: start: 202006

REACTIONS (3)
  - Menorrhagia [Unknown]
  - Polymenorrhoea [Unknown]
  - Product use in unapproved indication [Unknown]
